FAERS Safety Report 8992758 (Version 1)
Quarter: 2013Q1

REPORT INFORMATION
  Report Type: Report from Study
  Country: IT (occurrence: IT)
  Receive Date: 20130102
  Receipt Date: 20130102
  Transmission Date: 20140127
  Serious: Yes (Death)
  Sender: FDA-Public Use
  Company Number: IT-ROCHE-1174405

PATIENT
  Sex: 0
  Weight: 77 kg

DRUGS (3)
  1. ALTEPLASE [Suspect]
     Indication: CARDIOGENIC SHOCK
     Route: 042
     Dates: start: 19890812, end: 19890812
  2. PERSANTIN RETARD [Concomitant]
     Indication: MYOCARDIAL INFARCTION
     Route: 065
     Dates: start: 19890812, end: 19890812
  3. ASA [Concomitant]
     Indication: MYOCARDIAL INFARCTION
     Route: 048
     Dates: start: 19890812, end: 19890812

REACTIONS (1)
  - Myocardial infarction [Fatal]
